FAERS Safety Report 7551744-4 (Version None)
Quarter: 2011Q2

REPORT INFORMATION
  Report Type: 
  Country: None (occurrence: None)
  Receive Date: 20110616
  Receipt Date: 20101115
  Transmission Date: 20111010
  Serious: Yes (Hospitalization)
  Sender: FDA-Public Use
  Company Number: A0893500A

PATIENT
  Age: 45 Year
  Sex: Male
  Weight: 108.6 kg

DRUGS (10)
  1. ALLEGRA [Concomitant]
  2. CYMBALTA [Concomitant]
  3. SYNTHROID [Concomitant]
  4. PEPCID [Concomitant]
  5. NASACORT [Concomitant]
  6. AVANDIA [Suspect]
     Dosage: 4MG PER DAY
     Route: 048
     Dates: start: 19990101, end: 20070101
  7. LISINOPRIL [Concomitant]
  8. CELEBREX [Concomitant]
  9. INSULIN [Concomitant]
  10. VYTORIN [Concomitant]

REACTIONS (3)
  - CORONARY ARTERY DISEASE [None]
  - CARDIOVASCULAR DISORDER [None]
  - ANGINA UNSTABLE [None]
